FAERS Safety Report 11117418 (Version 1)
Quarter: 2015Q2

REPORT INFORMATION
  Report Type: Spontaneous
  Country: GB (occurrence: GB)
  Receive Date: 20150516
  Receipt Date: 20150516
  Transmission Date: 20150821
  Serious: Yes (Other)
  Sender: FDA-Public Use
  Company Number: GB-AUROBINDO-AUR-APL-2015-04312

PATIENT
  Sex: Male

DRUGS (2)
  1. BISOPROLOL 5 MG TABLETS [Suspect]
     Active Substance: BISOPROLOL
     Indication: ATRIAL FIBRILLATION
     Dosage: 5 MG, TWO TIMES A DAY FOR 5?6 YEARS
     Route: 065
  2. AMITRIPTYLINE [Suspect]
     Active Substance: AMITRIPTYLINE
     Indication: MUSCULOSKELETAL PAIN
     Dosage: 10 MG, UNK HAS NOT TAKEN ANY OF THE TABLETS
     Route: 065

REACTIONS (2)
  - Cardiac flutter [Unknown]
  - Product use issue [Unknown]
